FAERS Safety Report 20224678 (Version 3)
Quarter: 2022Q1

REPORT INFORMATION
  Report Type: Spontaneous
  Country: QA (occurrence: QA)
  Receive Date: 20211223
  Receipt Date: 20220208
  Transmission Date: 20220423
  Serious: Yes (Life-Threatening, Hospitalization, Other)
  Sender: FDA-Public Use
  Company Number: QA-MLMSERVICE-20211206-3256484-1

PATIENT
  Age: 29 Year
  Sex: Female
  Weight: 66 kg

DRUGS (13)
  1. LAMOTRIGINE [Interacting]
     Active Substance: LAMOTRIGINE
     Indication: Seizure
     Dosage: 50 MILLIGRAM, BID
     Route: 065
     Dates: start: 20190313, end: 20190314
  2. LAMOTRIGINE [Interacting]
     Active Substance: LAMOTRIGINE
     Indication: Anxiety
     Dosage: 150 MILLIGRAM, QD (INITIAL ESCALATION)
     Route: 048
     Dates: start: 20190315, end: 20190317
  3. LAMOTRIGINE [Interacting]
     Active Substance: LAMOTRIGINE
     Dosage: 100 MILLIGRAM, QD (DOSE REDUCED ON DAY 7)
     Route: 048
     Dates: start: 20190318, end: 20190323
  4. LAMOTRIGINE [Interacting]
     Active Substance: LAMOTRIGINE
     Dosage: 150 MILLIGRAM, QD (DOSE INCREASED ON DAY 13)
     Route: 048
     Dates: start: 20190324, end: 20190324
  5. LAMOTRIGINE [Interacting]
     Active Substance: LAMOTRIGINE
     Dosage: 50 MILLIGRAM, BID (DOSE REDUCED FOLLOWING ADR ONSET AND THEN DISCONTINUED)
     Route: 048
     Dates: start: 20190324, end: 20190326
  6. LEVETIRACETAM [Suspect]
     Active Substance: LEVETIRACETAM
     Indication: Seizure
     Dosage: 500 MILLIGRAM, BID
     Route: 048
     Dates: start: 20190127, end: 201902
  7. LEVETIRACETAM [Suspect]
     Active Substance: LEVETIRACETAM
     Dosage: 250 MILLIGRAM, BID
     Route: 048
     Dates: start: 201902, end: 20190204
  8. PHENYTOIN SODIUM [Interacting]
     Active Substance: PHENYTOIN SODIUM
     Indication: Seizure
     Dosage: 1000 MILLIGRAM (LOADING DOSE) *REPLACED WITH ORAL PREPERATION)
     Route: 042
     Dates: start: 20190311
  9. PHENYTOIN SODIUM [Interacting]
     Active Substance: PHENYTOIN SODIUM
     Dosage: 100 MILLIGRAM, TID  (TWELVE HOURS LATER, PHENYTOIN WAS CONTINUED AS ORAL 100 MG THRICE DAILY)
     Route: 048
     Dates: start: 20190311, end: 20190324
  10. PHENYTOIN SODIUM [Interacting]
     Active Substance: PHENYTOIN SODIUM
     Dosage: 100 MILLIGRAM, TID
     Route: 048
     Dates: start: 201904
  11. FOLIC ACID [Concomitant]
     Active Substance: FOLIC ACID
     Indication: Iron deficiency anaemia
     Dosage: UNK
     Route: 065
  12. IRON [Concomitant]
     Active Substance: IRON
     Indication: Iron deficiency anaemia
     Dosage: UNK
     Route: 065
  13. CYANOCOBALAMIN [Concomitant]
     Active Substance: CYANOCOBALAMIN
     Indication: Iron deficiency anaemia
     Dosage: UNK
     Route: 065

REACTIONS (10)
  - Drug reaction with eosinophilia and systemic symptoms [Recovered/Resolved]
  - Haematotoxicity [Recovered/Resolved]
  - Agranulocytosis [Recovered/Resolved]
  - Febrile neutropenia [Recovered/Resolved]
  - Lymphopenia [Recovered/Resolved]
  - Leukopenia [Recovered/Resolved]
  - Blood disorder [Recovered/Resolved]
  - Aspartate aminotransferase increased [Unknown]
  - Alanine aminotransferase increased [Unknown]
  - Accidental overdose [Unknown]

NARRATIVE: CASE EVENT DATE: 20190101
